FAERS Safety Report 19367424 (Version 1)
Quarter: 2021Q2

REPORT INFORMATION
  Report Type: Spontaneous
  Country: US (occurrence: US)
  Receive Date: 20210603
  Receipt Date: 20210603
  Transmission Date: 20210717
  Serious: No
  Sender: FDA-Public Use
  Company Number: US-PFIZER INC-2021252144

PATIENT
  Age: 39 Year
  Sex: Male

DRUGS (3)
  1. BOSULIF [Suspect]
     Active Substance: BOSUTINIB MONOHYDRATE
     Indication: CHRONIC MYELOID LEUKAEMIA
     Dosage: 200 MG, DAILY
     Route: 048
  2. SPRYCEL [Concomitant]
     Active Substance: DASATINIB
     Dosage: UNK
  3. DOPTELET [Concomitant]
     Active Substance: AVATROMBOPAG MALEATE
     Dosage: UNK

REACTIONS (2)
  - Diarrhoea [Unknown]
  - Weight increased [Unknown]
